FAERS Safety Report 8500538-1 (Version None)
Quarter: 2012Q3

REPORT INFORMATION
  Report Type: 
  Country: None (occurrence: None)
  Receive Date: 20120710
  Receipt Date: 20120705
  Transmission Date: 20120928
  Serious: Yes (Hospitalization)
  Sender: FDA-Public Use
  Company Number: AR-ROCHE-1056535

PATIENT
  Sex: Female

DRUGS (2)
  1. LUCENTIS [Suspect]
     Route: 050
     Dates: start: 20120123
  2. LUCENTIS [Suspect]
     Indication: MACULOPATHY
     Route: 050
     Dates: start: 20111101, end: 20120106

REACTIONS (4)
  - LUNG DISORDER [None]
  - RENAL DISORDER [None]
  - VISUAL IMPAIRMENT [None]
  - DRUG INEFFECTIVE [None]
